FAERS Safety Report 24621066 (Version 1)
Quarter: 2024Q4

REPORT INFORMATION
  Report Type: Spontaneous
  Country: US (occurrence: None)
  Receive Date: 20241114
  Receipt Date: 20241114
  Transmission Date: 20250114
  Serious: Yes (Death)
  Sender: Public
  Company Number: None

PATIENT
  Age: 64 Year
  Sex: Female

DRUGS (1)
  1. CAPECITABINE [Suspect]
     Active Substance: CAPECITABINE
     Indication: Brain neoplasm malignant
     Route: 048
     Dates: start: 202403

REACTIONS (2)
  - Malignant neoplasm progression [None]
  - Brain neoplasm malignant [None]

NARRATIVE: CASE EVENT DATE: 20241112
